FAERS Safety Report 15038057 (Version 1)
Quarter: 2018Q2

REPORT INFORMATION
  Report Type: Spontaneous
  Country: US (occurrence: US)
  Receive Date: 20180620
  Receipt Date: 20180620
  Transmission Date: 20180711
  Serious: No
  Sender: FDA-Public Use
  Company Number: US-BEH-2018091951

PATIENT
  Sex: Male
  Weight: 89.8 kg

DRUGS (29)
  1. SPIRIVA [Concomitant]
     Active Substance: TIOTROPIUM BROMIDE MONOHYDRATE
  2. MELOXICAM. [Concomitant]
     Active Substance: MELOXICAM
  3. ACETAMINOPHEN. [Concomitant]
     Active Substance: ACETAMINOPHEN
  4. DIPHENHYDRAMINE. [Concomitant]
     Active Substance: DIPHENHYDRAMINE
  5. BACLOFEN. [Concomitant]
     Active Substance: BACLOFEN
  6. DONEPEZIL. [Concomitant]
     Active Substance: DONEPEZIL
  7. HIZENTRA [Suspect]
     Active Substance: HUMAN IMMUNOGLOBULIN G
     Dosage: 10 G, TOT
     Route: 058
  8. DYMISTA [Concomitant]
     Active Substance: AZELASTINE HYDROCHLORIDE\FLUTICASONE PROPIONATE
  9. PREDNISONE. [Concomitant]
     Active Substance: PREDNISONE
  10. BUPROPION. [Concomitant]
     Active Substance: BUPROPION
  11. HIZENTRA [Suspect]
     Active Substance: HUMAN IMMUNOGLOBULIN G
     Indication: IMMUNODEFICIENCY COMMON VARIABLE
     Dosage: 10 G, QW
     Route: 058
     Dates: start: 20170525
  12. PANTOPRAZOLE [Concomitant]
     Active Substance: PANTOPRAZOLE
  13. LISINOPRIL. [Concomitant]
     Active Substance: LISINOPRIL
  14. SERTRALINE [Concomitant]
     Active Substance: SERTRALINE HYDROCHLORIDE
  15. RANITIDINE. [Concomitant]
     Active Substance: RANITIDINE
  16. VITAMIN D2 [Concomitant]
     Active Substance: ERGOCALCIFEROL
  17. LYRICA [Concomitant]
     Active Substance: PREGABALIN
  18. VENTOLIN [Concomitant]
     Active Substance: ALBUTEROL SULFATE
  19. ALBUTEROL                          /00139501/ [Concomitant]
     Active Substance: ALBUTEROL
  20. MAGNESIUM [Concomitant]
     Active Substance: MAGNESIUM
  21. GEMFIBROZIL. [Concomitant]
     Active Substance: GEMFIBROZIL
  22. POTASSIUM [Concomitant]
     Active Substance: POTASSIUM
  23. LIDOCAINE. [Concomitant]
     Active Substance: LIDOCAINE
  24. EPINEPHRINE. [Concomitant]
     Active Substance: EPINEPHRINE
  25. SINGULAIR [Concomitant]
     Active Substance: MONTELUKAST SODIUM
  26. ASPIRIN. [Concomitant]
     Active Substance: ASPIRIN
  27. ADVAIR HFA [Concomitant]
     Active Substance: FLUTICASONE PROPIONATE\SALMETEROL XINAFOATE
  28. TERAZOSIN [Concomitant]
     Active Substance: TERAZOSIN\TERAZOSIN HYDROCHLORIDE
  29. AMITRIPTYLINE [Concomitant]
     Active Substance: AMITRIPTYLINE

REACTIONS (2)
  - Somnambulism [Unknown]
  - Muscle spasms [Unknown]
